FAERS Safety Report 13366535 (Version 2)
Quarter: 2017Q2

REPORT INFORMATION
  Report Type: Spontaneous
  Country: US (occurrence: US)
  Receive Date: 20170323
  Receipt Date: 20170508
  Transmission Date: 20170830
  Serious: Yes (Other)
  Sender: FDA-Public Use
  Company Number: ALCN2017US002150

PATIENT
  Age: 85 Year
  Sex: Female

DRUGS (1)
  1. SYSTANE PF [Suspect]
     Active Substance: POLYETHYLENE GLYCOL 400\PROPYLENE GLYCOL
     Indication: PRODUCT USED FOR UNKNOWN INDICATION
     Dosage: UNK
     Route: 047

REACTIONS (4)
  - Product quality issue [Unknown]
  - Conjunctival haemorrhage [Unknown]
  - Eye pain [Unknown]
  - Product package associated injury [Unknown]

NARRATIVE: CASE EVENT DATE: 20170317
